FAERS Safety Report 15584557 (Version 1)
Quarter: 2018Q4

REPORT INFORMATION
  Report Type: Spontaneous
  Country: US (occurrence: US)
  Receive Date: 20181105
  Receipt Date: 20181105
  Transmission Date: 20190205
  Serious: Yes (Other)
  Sender: FDA-Public Use
  Company Number: None

PATIENT
  Age: 56 Year
  Sex: Female
  Weight: 54 kg

DRUGS (1)
  1. LAMOTRIGINE 25MG [Suspect]
     Active Substance: LAMOTRIGINE
     Indication: BIPOLAR DISORDER
     Dosage: ?          QUANTITY:125 CAPSULE(S);?
     Route: 048
     Dates: start: 20180918

REACTIONS (8)
  - Discomfort [None]
  - Tinnitus [None]
  - Bowel movement irregularity [None]
  - Hypopnoea [None]
  - Headache [None]
  - Musculoskeletal stiffness [None]
  - Micturition disorder [None]
  - Tremor [None]

NARRATIVE: CASE EVENT DATE: 20181001
